FAERS Safety Report 9083800 (Version 1)
Quarter: 2013Q1

REPORT INFORMATION
  Report Type: Spontaneous
  Country: US (occurrence: US)
  Receive Date: 20130131
  Receipt Date: 20130131
  Transmission Date: 20140127
  Serious: No
  Sender: FDA-Public Use
  Company Number: US-ABBOTT-12P-163-1001636-00

PATIENT
  Sex: Female
  Weight: 79.45 kg

DRUGS (2)
  1. HUMIRA [Suspect]
     Indication: ANKYLOSING SPONDYLITIS
     Dates: end: 201203
  2. HUMIRA [Suspect]
     Dates: start: 201203

REACTIONS (2)
  - Injection site haemorrhage [Not Recovered/Not Resolved]
  - Drug effect decreased [Recovered/Resolved]
